FAERS Safety Report 16350077 (Version 2)
Quarter: 2019Q3

REPORT INFORMATION
  Report Type: Spontaneous
  Country: US (occurrence: US)
  Receive Date: 20190523
  Receipt Date: 20190828
  Transmission Date: 20191004
  Serious: Yes (Hospitalization)
  Sender: FDA-Public Use
  Company Number: US-LEXICON PHARMACEUTICALS, INC-19-1606-00539

PATIENT
  Sex: Female

DRUGS (2)
  1. LANREOTIDE INJECTIONS [Concomitant]
  2. TELOTRISTAT ETHYL [Suspect]
     Active Substance: TELOTRISTAT ETHYL
     Indication: CARCINOID SYNDROME
     Route: 048
     Dates: start: 20181024, end: 20190716

REACTIONS (4)
  - Hospitalisation [Not Recovered/Not Resolved]
  - Intestinal perforation [Unknown]
  - Cognitive disorder [Unknown]
  - Nasopharyngitis [Recovering/Resolving]
